FAERS Safety Report 8003619 (Version 13)
Quarter: 2013Q3

REPORT INFORMATION
  Report Type: Spontaneous
  Country: IE (occurrence: IE)
  Receive Date: 20110623
  Receipt Date: 20130819
  Transmission Date: 20140515
  Serious: Yes (Other)
  Sender: FDA-Public Use
  Company Number: IE-BIOGENIDEC-2011BI021386

PATIENT
  Age: 51 Year
  Sex: Female

DRUGS (5)
  1. TYSABRI [Suspect]
     Indication: MULTIPLE SCLEROSIS
     Dates: start: 20071008, end: 20110331
  2. RIVOTRIL [Concomitant]
     Indication: MUSCLE TIGHTNESS
  3. THYROXINE [Concomitant]
  4. LUSTRAL [Concomitant]
  5. NEURONTIN [Concomitant]
     Indication: MUSCLE TIGHTNESS

REACTIONS (2)
  - Progressive multifocal leukoencephalopathy [Unknown]
  - Nuclear magnetic resonance imaging abnormal [Unknown]
